FAERS Safety Report 7582672-6 (Version None)
Quarter: 2011Q2

REPORT INFORMATION
  Report Type: 
  Country: None (occurrence: None)
  Receive Date: 20110630
  Receipt Date: 20110628
  Transmission Date: 20111010
  Serious: No
  Sender: FDA-Public Use
  Company Number: US-PFIZER INC-2011144083

PATIENT
  Sex: Female
  Weight: 56.6 kg

DRUGS (1)
  1. ADVIL LIQUI-GELS [Suspect]
     Indication: INJURY
     Dosage: 2 TABLETS, UNKNOWN FREQUENCY
     Route: 048
     Dates: start: 20110501, end: 20110501

REACTIONS (1)
  - MALAISE [None]
